FAERS Safety Report 24306882 (Version 2)
Quarter: 2024Q4

REPORT INFORMATION
  Report Type: Spontaneous
  Country: US (occurrence: US)
  Receive Date: 20240911
  Receipt Date: 20241017
  Transmission Date: 20250114
  Serious: No
  Sender: GRANULES PHARMACEUTICALS INC
  Company Number: US-GRANULES-US-2024GRASPO00400

PATIENT

DRUGS (2)
  1. NAPROXEN SODIUM [Suspect]
     Active Substance: NAPROXEN SODIUM
     Indication: Product used for unknown indication
     Route: 065
  2. NAPROXEN SODIUM [Suspect]
     Active Substance: NAPROXEN SODIUM

REACTIONS (1)
  - Drug ineffective [Unknown]
